FAERS Safety Report 14638344 (Version 3)
Quarter: 2018Q2

REPORT INFORMATION
  Report Type: Report from Study
  Country: US (occurrence: US)
  Receive Date: 20180314
  Receipt Date: 20180504
  Transmission Date: 20180711
  Serious: Yes (Hospitalization)
  Sender: FDA-Public Use
  Company Number: US-SEATTLE GENETICS-2018SGN00476

PATIENT
  Age: 72 Year
  Sex: Male
  Weight: 70.9 kg

DRUGS (1)
  1. BRENTUXIMAB VEDOTIN [Suspect]
     Active Substance: BRENTUXIMAB VEDOTIN
     Indication: PLEURAL MESOTHELIOMA
     Dosage: 2.4 MG/KG, Q3WEEKS
     Route: 042
     Dates: start: 20180221, end: 20180221

REACTIONS (2)
  - Pleural effusion [Recovered/Resolved]
  - Neutropenia [Recovered/Resolved]

NARRATIVE: CASE EVENT DATE: 20180303
